FAERS Safety Report 8972758 (Version 1)
Quarter: 2012Q4

REPORT INFORMATION
  Report Type: 
  Country: ES (occurrence: ES)
  Receive Date: 20121218
  Receipt Date: 20121218
  Transmission Date: 20130627
  Serious: Yes (Hospitalization)
  Sender: FDA-Public Use
  Company Number: ES-ROCHE-1170209

PATIENT
  Age: 39 Year
  Sex: Female

DRUGS (5)
  1. PEGASYS [Suspect]
     Indication: HEPATITIS C
     Route: 058
     Dates: start: 20120117, end: 20120712
  2. REBETOL [Interacting]
     Indication: HEPATITIS C
     Route: 048
     Dates: start: 20120117, end: 20120712
  3. PREZISTA [Concomitant]
     Indication: HIV INFECTION
     Route: 065
     Dates: start: 201102
  4. RITONAVIR [Concomitant]
     Indication: HIV INFECTION
     Route: 065
     Dates: start: 201102
  5. TRUVADA [Concomitant]
     Route: 065
     Dates: start: 201102

REACTIONS (2)
  - Psychotic disorder [Recovered/Resolved]
  - Drug interaction [Unknown]
